FAERS Safety Report 19289502 (Version 1)
Quarter: 2021Q2

REPORT INFORMATION
  Report Type: Report from Study
  Country: US (occurrence: US)
  Receive Date: 20210522
  Receipt Date: 20210522
  Transmission Date: 20210717
  Serious: Yes (Other)
  Sender: FDA-Public Use
  Company Number: US-UCBSA-2021022507

PATIENT
  Age: 29 Year
  Sex: Female
  Weight: 82.54 kg

DRUGS (12)
  1. TYLENOL [Concomitant]
     Active Substance: ACETAMINOPHEN
     Indication: HEADACHE
     Dosage: 750 MILLIGRAM, 2X/WEEK
     Route: 048
     Dates: start: 20210122, end: 20210504
  2. ZOFRAN [Concomitant]
     Active Substance: ONDANSETRON HYDROCHLORIDE
     Indication: ABDOMINAL DISCOMFORT
     Dosage: UNK
     Route: 042
     Dates: start: 20210319, end: 20210319
  3. BENADRYL [Concomitant]
     Active Substance: DIPHENHYDRAMINE HYDROCHLORIDE
     Indication: HEADACHE
     Dosage: 25 MILLIGRAM, 2X/MONTH
     Route: 048
     Dates: start: 20210122, end: 20210504
  4. METRONIDAZOLE. [Concomitant]
     Active Substance: METRONIDAZOLE
     Indication: VAGINAL INFECTION
     Dosage: 1 PILL X 2DAY
     Route: 048
     Dates: start: 20210429, end: 20210503
  5. MORPHINE [Concomitant]
     Active Substance: MORPHINE
     Indication: CROHN^S DISEASE
     Dosage: UNK
     Route: 042
     Dates: start: 20210319, end: 20210319
  6. ZOFRAN [Concomitant]
     Active Substance: ONDANSETRON HYDROCHLORIDE
     Indication: VOMITING
  7. ZOFRAN [Concomitant]
     Active Substance: ONDANSETRON HYDROCHLORIDE
     Indication: ABDOMINAL DISCOMFORT
     Dosage: 4 MILLIGRAM, ONCE DAILY (QD)
     Route: 048
     Dates: start: 20210329, end: 20210329
  8. PRENATAL VITAMINS [MINERALS NOS;VITAMINS NOS] [Concomitant]
     Active Substance: MINERALS\VITAMINS
     Indication: PRODUCT USED FOR UNKNOWN INDICATION
     Dosage: 1 PILL A DAY
     Route: 048
     Dates: start: 20201015, end: 20210504
  9. VITAMIN D [COLECALCIFEROL] [Concomitant]
     Active Substance: CHOLECALCIFEROL
     Indication: PRODUCT USED FOR UNKNOWN INDICATION
     Dosage: 1000 INTERNATIONAL UNIT, ONCE DAILY (QD)
     Route: 048
     Dates: start: 20210417, end: 20210504
  10. TYLENOL [Concomitant]
     Active Substance: ACETAMINOPHEN
     Indication: ABDOMINAL PAIN
     Dosage: 1000 MILLIGRAM, 2X/WEEK
     Route: 048
     Dates: start: 20210319, end: 20210319
  11. CERTOLIZUMAB PEGOL RA [Suspect]
     Active Substance: CERTOLIZUMAB PEGOL
     Indication: CROHN^S DISEASE
     Dosage: 400 MILLIGRAM, MONTHLY (QM)
     Route: 058
     Dates: start: 20180701, end: 20210504
  12. TUMS [Concomitant]
     Active Substance: CALCIUM CARBONATE
     Indication: GASTROOESOPHAGEAL REFLUX DISEASE
     Dosage: 2PILL X3WEEK
     Route: 048
     Dates: start: 20210122, end: 20210504

REACTIONS (8)
  - Abortion spontaneous [Unknown]
  - Crohn^s disease [Unknown]
  - Gastrooesophageal reflux disease [Unknown]
  - Gastroenteritis viral [Recovered/Resolved]
  - Vaginal infection [Recovered/Resolved]
  - Maternal exposure before pregnancy [Unknown]
  - Sepsis [Recovered/Resolved]
  - Headache [Unknown]

NARRATIVE: CASE EVENT DATE: 20210205
